FAERS Safety Report 9406565 (Version 1)
Quarter: 2013Q3

REPORT INFORMATION
  Report Type: Report from Study
  Country: FR (occurrence: FR)
  Receive Date: 20130718
  Receipt Date: 20130718
  Transmission Date: 20140515
  Serious: Yes (Hospitalization, Other)
  Sender: FDA-Public Use
  Company Number: FR-009507513-1108FRA00102

PATIENT
  Age: 64 Year
  Sex: Female

DRUGS (11)
  1. SITAGLIPTIN PHOSPHATE (+) METFORMIN HYDROCHLORIDE [Suspect]
     Indication: TYPE 2 DIABETES MELLITUS
     Dosage: 2 UNK, UNK
     Route: 048
     Dates: start: 20101021, end: 20110713
  2. GLIMEPIRIDE [Concomitant]
     Indication: TYPE 2 DIABETES MELLITUS
     Dosage: 4 MG, QD
     Route: 048
     Dates: start: 20101021, end: 20110713
  3. CRESTOR [Concomitant]
     Indication: DYSLIPIDAEMIA
     Dosage: 5 MG, QD
     Route: 048
  4. BISOPROLOL [Concomitant]
     Indication: HYPERTENSION
     Dosage: 10 MG, QD
     Route: 048
  5. COAPROVEL [Concomitant]
     Indication: HYPERTENSION
     Dosage: 300 MG-12.5
     Route: 048
  6. LERCANIDIPINE [Concomitant]
     Indication: HYPERTENSION
     Dosage: 10 MG, QD
     Route: 048
  7. PANTOPRAZOLE [Concomitant]
     Indication: ABDOMINAL PAIN UPPER
     Dosage: 20 MG, QD
     Route: 048
  8. LORAZEPAM [Concomitant]
     Indication: ANXIETY
     Dosage: 1 MG, QD
     Route: 048
  9. HAWTHORN [Concomitant]
     Indication: MUSCLE SPASMS
     Dosage: 4 DF, QD
     Route: 048
  10. QUININE [Concomitant]
     Indication: MUSCLE SPASMS
     Dosage: 4 DF, QD
     Route: 048
  11. LIORAM [Concomitant]
     Dosage: 10 MG, QD
     Route: 048

REACTIONS (1)
  - Endometrial cancer [Not Recovered/Not Resolved]
